FAERS Safety Report 16186069 (Version 2)
Quarter: 2019Q3

REPORT INFORMATION
  Report Type: Spontaneous
  Country: US (occurrence: US)
  Receive Date: 20190411
  Receipt Date: 20190826
  Transmission Date: 20191004
  Serious: Yes (Other)
  Sender: FDA-Public Use
  Company Number: US-GILEAD-2019-0401117

PATIENT
  Sex: Female

DRUGS (1)
  1. HARVONI [Suspect]
     Active Substance: LEDIPASVIR\SOFOSBUVIR
     Indication: PRODUCT USED FOR UNKNOWN INDICATION
     Dosage: UNK
     Route: 065
     Dates: start: 2016

REACTIONS (13)
  - Deafness [Unknown]
  - Liver injury [Unknown]
  - Blindness [Unknown]
  - Hypersensitivity [Unknown]
  - Chills [Unknown]
  - Immune system disorder [Unknown]
  - Cough [Unknown]
  - Oropharyngeal pain [Unknown]
  - Memory impairment [Unknown]
  - Hepatic lesion [Unknown]
  - Dysphonia [Unknown]
  - Fear of disease [Not Recovered/Not Resolved]
  - Visual impairment [Not Recovered/Not Resolved]
